FAERS Safety Report 15331326 (Version 1)
Quarter: 2018Q3

REPORT INFORMATION
  Report Type: Spontaneous
  Country: GB (occurrence: GB)
  Receive Date: 20180829
  Receipt Date: 20180829
  Transmission Date: 20181010
  Serious: Yes (Other)
  Sender: FDA-Public Use
  Company Number: PHHY2018GB082807

PATIENT
  Sex: Female

DRUGS (1)
  1. TEGRETOL [Suspect]
     Active Substance: CARBAMAZEPINE
     Indication: EPILEPSY
     Dosage: 800 MG, QD
     Route: 065

REACTIONS (9)
  - Multiple fractures [Unknown]
  - Fall [Unknown]
  - Wrist fracture [Unknown]
  - Osteoporosis [Unknown]
  - Head injury [Unknown]
  - Pneumothorax [Unknown]
  - Epilepsy [Unknown]
  - Intentional self-injury [Unknown]
  - Aggression [Unknown]
